FAERS Safety Report 12729923 (Version 2)
Quarter: 2016Q3

REPORT INFORMATION
  Report Type: Spontaneous
  Country: US (occurrence: US)
  Receive Date: 20160909
  Receipt Date: 20160927
  Transmission Date: 20161109
  Serious: Yes (Disabling)
  Sender: FDA-Public Use
  Company Number: US-SAOL THERAPEUTICS-2016SAO00430

PATIENT
  Age: 56 Year
  Sex: Female

DRUGS (6)
  1. BACLOFEN. [Suspect]
     Active Substance: BACLOFEN
     Indication: PAIN
     Dosage: 63.67 ?G, \DAY
     Route: 037
  2. FENTANYL. [Suspect]
     Active Substance: FENTANYL
     Dosage: 1022.9 ?G, \DAY
     Route: 037
  3. BACLOFEN. [Suspect]
     Active Substance: BACLOFEN
     Indication: POST LAMINECTOMY SYNDROME
  4. OXYCODONE [Concomitant]
     Active Substance: OXYCODONE
  5. DILAUDID [Suspect]
     Active Substance: HYDROMORPHONE HYDROCHLORIDE
     Dosage: 2.0459 MG, \DAY
     Route: 037
  6. LORTAB [Concomitant]
     Active Substance: ACETAMINOPHEN\HYDROCODONE BITARTRATE

REACTIONS (5)
  - Drug ineffective for unapproved indication [Unknown]
  - Mobility decreased [Unknown]
  - Back disorder [Unknown]
  - Pain [Unknown]
  - Device alarm issue [Unknown]

NARRATIVE: CASE EVENT DATE: 201604
